FAERS Safety Report 6939640-4 (Version None)
Quarter: 2010Q3

REPORT INFORMATION
  Report Type: 
  Country: None (occurrence: None)
  Receive Date: 20100825
  Receipt Date: 20100816
  Transmission Date: 20110219
  Serious: Yes (Other)
  Sender: FDA-Public Use
  Company Number: US-ASTRAZENECA-2007UW11464

PATIENT
  Age: 36 Year
  Sex: Female
  Weight: 108 kg

DRUGS (34)
  1. SEROQUEL [Suspect]
     Indication: DEPRESSION
     Dosage: 25 MG - 750 MG
     Route: 048
     Dates: start: 20000101, end: 20061201
  2. SEROQUEL [Suspect]
     Indication: INSOMNIA
     Dosage: 25 MG - 750 MG
     Route: 048
     Dates: start: 20000101, end: 20061201
  3. SEROQUEL [Suspect]
     Dosage: 50 MG - 200 MG QD
     Route: 048
     Dates: start: 20010809, end: 20020724
  4. SEROQUEL [Suspect]
     Dosage: 50 MG - 200 MG QD
     Route: 048
     Dates: start: 20010809, end: 20020724
  5. SEROQUEL [Suspect]
     Dosage: 50-750 MG
     Route: 048
     Dates: start: 20010907, end: 20061201
  6. SEROQUEL [Suspect]
     Dosage: 50-750 MG
     Route: 048
     Dates: start: 20010907, end: 20061201
  7. SEROQUEL [Suspect]
     Route: 048
     Dates: start: 20020812, end: 20030325
  8. SEROQUEL [Suspect]
     Route: 048
     Dates: start: 20020812, end: 20030325
  9. SEROQUEL [Suspect]
     Dosage: 200 MG - 300 MG QD
     Route: 048
     Dates: start: 20030602, end: 20050118
  10. SEROQUEL [Suspect]
     Dosage: 200 MG - 300 MG QD
     Route: 048
     Dates: start: 20030602, end: 20050118
  11. AMITRIPTYLINE HCL [Concomitant]
  12. SYNTHROID [Concomitant]
  13. PRILOSEC [Concomitant]
  14. GLUCOPHAGE [Concomitant]
  15. GLIPIZIDE [Concomitant]
  16. LIPITOR [Concomitant]
     Indication: BLOOD CHOLESTEROL INCREASED
  17. LIPITOR [Concomitant]
     Indication: HYPERLIPIDAEMIA
  18. LEXAPRO [Concomitant]
     Dosage: 20 MG TO 40 MG
  19. ENALAPRIL [Concomitant]
  20. NAPROSYN [Concomitant]
  21. VIOXX [Concomitant]
  22. CELEXA [Concomitant]
     Dosage: 20 MG TO 40 MG
     Dates: start: 20010730, end: 20050207
  23. AZMACORT [Concomitant]
  24. ALBUTEROL [Concomitant]
  25. BYETTA [Concomitant]
  26. LANTUS [Concomitant]
  27. AVANDIA [Concomitant]
  28. ACTOS [Concomitant]
  29. RISPERDAL [Concomitant]
     Indication: DEPRESSION
     Dates: start: 20011018, end: 20020119
  30. RISPERDAL [Concomitant]
     Indication: INSOMNIA
     Dates: start: 20011018, end: 20020119
  31. ABILIFY [Concomitant]
     Dates: start: 20040420, end: 20040520
  32. TRAZODONE HCL [Concomitant]
     Dosage: 100 MG TO 200  MG
  33. DEPAKOTE [Concomitant]
     Dates: start: 20060825
  34. ALPRAZOLAM [Concomitant]

REACTIONS (13)
  - BLOOD CHOLESTEROL INCREASED [None]
  - CARDIAC FAILURE CONGESTIVE [None]
  - CHRONIC OBSTRUCTIVE PULMONARY DISEASE [None]
  - DIABETIC GASTROPARESIS [None]
  - HYPERGLYCAEMIA [None]
  - HYPERLIPIDAEMIA [None]
  - HYPOGLYCAEMIA [None]
  - INTERVERTEBRAL DISC PROTRUSION [None]
  - PLATELET COUNT DECREASED [None]
  - RASH [None]
  - RENAL DISORDER [None]
  - RENAL FAILURE ACUTE [None]
  - TYPE 2 DIABETES MELLITUS [None]
